FAERS Safety Report 23131568 (Version 4)
Quarter: 2024Q1

REPORT INFORMATION
  Report Type: Spontaneous
  Country: US (occurrence: US)
  Receive Date: 20231031
  Receipt Date: 20240125
  Transmission Date: 20240409
  Serious: Yes (Other)
  Sender: FDA-Public Use
  Company Number: US-LUNDBECK-DKLU3069394

PATIENT
  Age: 3 Year
  Sex: Male

DRUGS (2)
  1. SABRIL [Suspect]
     Active Substance: VIGABATRIN
     Indication: Tuberous sclerosis complex
     Dosage: 1 1/2 TABLETS QAM AND 1 1/2 TABLETS QHS
     Route: 048
     Dates: start: 202307
  2. VIGABATRIN [Suspect]
     Active Substance: VIGABATRIN
     Indication: Tuberous sclerosis complex
     Route: 065

REACTIONS (5)
  - Infantile spasms [Not Recovered/Not Resolved]
  - Seizure [Not Recovered/Not Resolved]
  - Adverse drug reaction [Unknown]
  - Fall [Unknown]
  - Product supply issue [Unknown]
